FAERS Safety Report 11831832 (Version 1)
Quarter: 2015Q4

REPORT INFORMATION
  Report Type: Spontaneous
  Country: US (occurrence: US)
  Receive Date: 20151214
  Receipt Date: 20151214
  Transmission Date: 20160305
  Serious: Yes (Other)
  Sender: FDA-Public Use
  Company Number: US-ENDO PHARMACEUTICALS INC.-2015-003306

PATIENT
  Sex: Male

DRUGS (1)
  1. AVEED [Suspect]
     Active Substance: TESTOSTERONE UNDECANOATE
     Indication: TESTICULAR FAILURE
     Route: 030
     Dates: start: 20150422, end: 20150723

REACTIONS (6)
  - Haematospermia [Unknown]
  - Urine flow decreased [Unknown]
  - Haematuria [Unknown]
  - Groin pain [Unknown]
  - Micturition urgency [Unknown]
  - Prostatomegaly [Unknown]
